FAERS Safety Report 7295568-4 (Version None)
Quarter: 2011Q1

REPORT INFORMATION
  Report Type: 
  Country: None (occurrence: None)
  Receive Date: 20110216
  Receipt Date: 20101227
  Transmission Date: 20110831
  Serious: No
  Sender: FDA-Public Use
  Company Number: US-ABBOTT-10P-163-0693593-00

PATIENT
  Sex: Female
  Weight: 72.64 kg

DRUGS (5)
  1. PRESTIQUE [Concomitant]
     Indication: PRODUCT USED FOR UNKNOWN INDICATION
  2. SIMCOR [Suspect]
     Indication: BLOOD TRIGLYCERIDES INCREASED
     Dosage: DAILY AT BEDTIME
     Dates: end: 20101222
  3. ADVAIR DISKUS 100/50 [Concomitant]
     Indication: PRODUCT USED FOR UNKNOWN INDICATION
  4. ESTRADIOL HORMONE [Concomitant]
     Indication: PRODUCT USED FOR UNKNOWN INDICATION
  5. ALLERGY INJECTION [Concomitant]
     Indication: PRODUCT USED FOR UNKNOWN INDICATION

REACTIONS (4)
  - HEADACHE [None]
  - ASTHENIA [None]
  - NAUSEA [None]
  - SKIN BURNING SENSATION [None]
